FAERS Safety Report 16393508 (Version 5)
Quarter: 2020Q3

REPORT INFORMATION
  Report Type: Report from Study
  Country: US (occurrence: US)
  Receive Date: 20190605
  Receipt Date: 20200922
  Transmission Date: 20201102
  Serious: Yes (Other)
  Sender: FDA-Public Use
  Company Number: US-TAKEDA-2018TUS005178

PATIENT
  Sex: Male

DRUGS (3)
  1. PONATINIB [Suspect]
     Active Substance: PONATINIB
     Indication: CHRONIC MYELOID LEUKAEMIA
     Dosage: 45 MILLIGRAM, QD
     Route: 048
     Dates: start: 20180208
  2. URSODIOL. [Concomitant]
     Active Substance: URSODIOL
     Dosage: UNK
     Route: 065
  3. PONATINIB [Suspect]
     Active Substance: PONATINIB
     Dosage: 30 MILLIGRAM, QD
     Route: 048

REACTIONS (12)
  - Sinusitis [Unknown]
  - Pyrexia [Recovered/Resolved]
  - Pain [Unknown]
  - Chronic myeloid leukaemia recurrent [Unknown]
  - Fatigue [Unknown]
  - Bone pain [Recovering/Resolving]
  - Cold sweat [Unknown]
  - Neuropathy peripheral [Unknown]
  - Graft versus host disease in eye [Unknown]
  - Constipation [Recovering/Resolving]
  - Pain in extremity [Unknown]
  - Arthralgia [Unknown]
